FAERS Safety Report 8236847-3 (Version None)
Quarter: 2012Q1

REPORT INFORMATION
  Report Type: 
  Country: None (occurrence: None)
  Receive Date: 20120327
  Receipt Date: 20120322
  Transmission Date: 20120608
  Serious: Yes (Other)
  Sender: FDA-Public Use
  Company Number: SE-PFIZER INC-2012075645

PATIENT
  Sex: Female

DRUGS (1)
  1. LIPITOR [Suspect]
     Dosage: UNK
     Route: 048
     Dates: start: 20110301

REACTIONS (3)
  - OSTEOARTHRITIS [None]
  - ARTHRALGIA [None]
  - PARAESTHESIA [None]
